FAERS Safety Report 5326524-0 (Version None)
Quarter: 2007Q2

REPORT INFORMATION
  Report Type: 
  Country: None (occurrence: None)
  Receive Date: 20070510
  Receipt Date: 20070502
  Transmission Date: 20071010
  Serious: Yes (Hospitalization)
  Sender: FDA-Public Use
  Company Number: OSCN-PR-0705S-0195

PATIENT
  Age: 57 Year
  Sex: Female

DRUGS (1)
  1. OMNISCAN [Suspect]
     Indication: BACK PAIN
     Dosage: 20 ML, SINGLE DOSE, I.T.
     Route: 037
     Dates: start: 20070502, end: 20070502

REACTIONS (4)
  - CONFUSIONAL STATE [None]
  - INCORRECT ROUTE OF DRUG ADMINISTRATION [None]
  - NEUROLOGICAL SYMPTOM [None]
  - PARAESTHESIA [None]
